FAERS Safety Report 8096908-9 (Version None)
Quarter: 2012Q1

REPORT INFORMATION
  Report Type: 
  Country: None (occurrence: None)
  Receive Date: 20120129
  Receipt Date: 20111108
  Transmission Date: 20120608
  Serious: Yes (Hospitalization)
  Sender: FDA-Public Use
  Company Number: US-ABBOTT-11P-163-0872233-00

PATIENT
  Sex: Female
  Weight: 50.848 kg

DRUGS (2)
  1. IMURAN [Concomitant]
     Indication: PRODUCT USED FOR UNKNOWN INDICATION
  2. HUMIRA [Suspect]
     Indication: CROHN'S DISEASE
     Route: 058

REACTIONS (5)
  - ILEOSTOMY [None]
  - HYSTERECTOMY [None]
  - HERNIA REPAIR [None]
  - INCISION SITE ABSCESS [None]
  - RESPIRATORY TRACT INFECTION [None]
